FAERS Safety Report 26185688 (Version 1)
Quarter: 2025Q4

REPORT INFORMATION
  Report Type: Spontaneous
  Country: CN (occurrence: CN)
  Receive Date: 20251222
  Receipt Date: 20251222
  Transmission Date: 20260117
  Serious: Yes (Hospitalization, Other)
  Sender: BAXTER
  Company Number: None

PATIENT
  Age: 2 Year
  Sex: Male
  Weight: 15 kg

DRUGS (5)
  1. CYCLOPHOSPHAMIDE [Suspect]
     Active Substance: CYCLOPHOSPHAMIDE
     Indication: Acute lymphocytic leukaemia
     Dosage: 0.61 G, QD (D1)
     Route: 041
     Dates: start: 20250722, end: 20250722
  2. SODIUM CHLORIDE [Suspect]
     Active Substance: SODIUM CHLORIDE
     Dosage: 250 ML, QD,  0.9% NS WITH CYCLOPHOSPHAMIDE
     Route: 041
     Dates: start: 20250722, end: 20250722
  3. DEXTROSE\SODIUM CHLORIDE [Suspect]
     Active Substance: DEXTROSE\SODIUM CHLORIDE
     Dosage: 250 ML, BID (4: 1) WITH CYTARABINE
     Route: 041
     Dates: start: 20250722, end: 20250724
  4. MERCAPTOPURINE [Suspect]
     Active Substance: MERCAPTOPURINE
     Indication: Acute lymphocytic leukaemia
     Dosage: 30 UG, QD (D1-D7) QN
     Route: 048
     Dates: start: 20250722, end: 20250728
  5. CYTARABINE [Suspect]
     Active Substance: CYTARABINE
     Indication: Acute lymphocytic leukaemia
     Dosage: 0.61 G, BID (Q12H (6 TIMES IN TOTAL))
     Route: 041
     Dates: start: 20250722, end: 20250724

REACTIONS (3)
  - Myelosuppression [Recovering/Resolving]
  - Platelet count decreased [Recovering/Resolving]
  - Haemoglobin decreased [Recovering/Resolving]

NARRATIVE: CASE EVENT DATE: 20250728
